FAERS Safety Report 24060638 (Version 1)
Quarter: 2024Q3

REPORT INFORMATION
  Report Type: Spontaneous
  Country: PR (occurrence: PR)
  Receive Date: 20240708
  Receipt Date: 20240708
  Transmission Date: 20241017
  Serious: Yes (Hospitalization)
  Sender: AMGEN
  Company Number: PR-AMGEN-PRISP2024132447

PATIENT
  Sex: Male

DRUGS (2)
  1. XGEVA [Suspect]
     Active Substance: DENOSUMAB
     Indication: Product used for unknown indication
     Dosage: UNK
     Route: 065
  2. INLYTA [Suspect]
     Active Substance: AXITINIB
     Indication: Product used for unknown indication
     Dosage: UNK UNK, BID (1 TAB)
     Route: 048
     Dates: start: 20200413

REACTIONS (3)
  - Groin abscess [Unknown]
  - Dizziness [Unknown]
  - Exposed bone in jaw [Unknown]
